FAERS Safety Report 14971782 (Version 1)
Quarter: 2018Q2

REPORT INFORMATION
  Report Type: Report from Study
  Country: BR (occurrence: BR)
  Receive Date: 20180605
  Receipt Date: 20180605
  Transmission Date: 20180711
  Serious: Yes (Congenital Anomaly)
  Sender: FDA-Public Use
  Company Number: BR-HETERO CORPORATE-HET2018BR00482

PATIENT
  Sex: Female
  Weight: 2.6 kg

DRUGS (2)
  1. LAMIVUDINE AND ZIDOVUDINE [Suspect]
     Active Substance: LAMIVUDINE\ZIDOVUDINE
     Indication: PROPHYLAXIS AGAINST HIV INFECTION
     Dosage: 450 MG, QD
     Route: 064
     Dates: start: 20180201, end: 20180518
  2. ISENTRESS [Suspect]
     Active Substance: RALTEGRAVIR POTASSIUM
     Indication: PROPHYLAXIS AGAINST HIV INFECTION
     Dosage: 400 MG, QD
     Route: 064
     Dates: start: 20180201, end: 20180518

REACTIONS (2)
  - Congenital skin dimples [Unknown]
  - Foetal exposure during pregnancy [Unknown]
